FAERS Safety Report 4741666-6 (Version None)
Quarter: 2005Q3

REPORT INFORMATION
  Report Type: 
  Country: None (occurrence: None)
  Receive Date: 20050801
  Receipt Date: 20050628
  Transmission Date: 20060218
  Serious: No
  Sender: FDA-Public Use
  Company Number: 2005PV000155

PATIENT
  Age: 69 Year
  Sex: Female
  Weight: 78.0187 kg

DRUGS (11)
  1. BYETTA [Suspect]
     Indication: DIABETES MELLITUS NON-INSULIN-DEPENDENT
     Dosage: 5 UG;BID;SC
     Route: 058
     Dates: start: 20050622
  2. NOVOLIN R [Concomitant]
  3. HUMULIN N [Concomitant]
  4. METFORMIN [Concomitant]
  5. AMARYL [Concomitant]
  6. ACTOS [Concomitant]
  7. GEMFIBROZIL [Concomitant]
  8. CLONIDINE [Concomitant]
  9. LOVASTIN [Concomitant]
  10. UNIVASC [Concomitant]
  11. ZANTAC [Concomitant]

REACTIONS (1)
  - DYSPEPSIA [None]
